FAERS Safety Report 6675030-X (Version None)
Quarter: 2010Q2

REPORT INFORMATION
  Report Type: 
  Country: None (occurrence: None)
  Receive Date: 20100409
  Receipt Date: 20100401
  Transmission Date: 20101027
  Serious: Yes (Hospitalization, Disabling)
  Sender: FDA-Public Use
  Company Number: US-MERCK-1003USA03572

PATIENT
  Age: 14 Year
  Sex: Male

DRUGS (2)
  1. SINGULAIR [Suspect]
     Indication: HYPERSENSITIVITY
     Route: 048
     Dates: start: 20050101, end: 20100301
  2. ZYRTEC [Concomitant]
     Dosage: ON FOR SEVERAL YEARS
     Route: 065
     Dates: end: 20100301

REACTIONS (2)
  - BLOOD URINE [None]
  - URINARY BLADDER HAEMORRHAGE [None]
